FAERS Safety Report 7935298-6 (Version None)
Quarter: 2011Q4

REPORT INFORMATION
  Report Type: 
  Country: None (occurrence: None)
  Receive Date: 20111122
  Receipt Date: 20111114
  Transmission Date: 20120403
  Serious: Yes (Hospitalization)
  Sender: FDA-Public Use
  Company Number: US-ABBOTT-99P-163-0519944-00

PATIENT
  Sex: Female
  Weight: 71.732 kg

DRUGS (2)
  1. LUPRON DEPOT [Suspect]
     Indication: UTERINE LEIOMYOMA
     Dosage: OTH
     Route: 030
     Dates: start: 19981201, end: 19990129
  2. NIFEREX FORTE [Concomitant]
     Route: 065

REACTIONS (3)
  - HEPATITIS [None]
  - ABDOMINAL PAIN [None]
  - PYREXIA [None]
